FAERS Safety Report 25761506 (Version 1)
Quarter: 2025Q3

REPORT INFORMATION
  Report Type: Spontaneous
  Country: US (occurrence: US)
  Receive Date: 20250904
  Receipt Date: 20250904
  Transmission Date: 20251021
  Serious: No
  Sender: MEDEXUS PHARMA
  Company Number: US-MEDEXUS PHARMA, INC.-2024MED00481

PATIENT
  Sex: Female

DRUGS (13)
  1. RASUVO [Suspect]
     Active Substance: METHOTREXATE SODIUM
     Indication: Rheumatoid arthritis
     Dates: start: 2022
  2. RASUVO [Suspect]
     Active Substance: METHOTREXATE SODIUM
     Indication: Rheumatoid arthritis
  3. RASUVO [Suspect]
     Active Substance: METHOTREXATE SODIUM
     Indication: Rheumatoid arthritis
  4. CELECOXIB [Concomitant]
     Active Substance: CELECOXIB
  5. AMLODIPINE [Concomitant]
     Active Substance: AMLODIPINE BESYLATE
  6. FOLIC ACID [Concomitant]
     Active Substance: FOLIC ACID
  7. LISINOPRIL [Concomitant]
     Active Substance: LISINOPRIL
  8. RECLAST [Concomitant]
     Active Substance: ZOLEDRONIC ACID
  9. TRAMADOL [Concomitant]
     Active Substance: TRAMADOL
  10. GABAPENTIN [Concomitant]
     Active Substance: GABAPENTIN
  11. VITAMIN D3 [Concomitant]
     Active Substance: CHOLECALCIFEROL
  12. OMEPRAZOLE [Concomitant]
     Active Substance: OMEPRAZOLE
  13. VENLAFAXINE [Concomitant]
     Active Substance: VENLAFAXINE HYDROCHLORIDE

REACTIONS (1)
  - Liver disorder [Recovered/Resolved]
